FAERS Safety Report 4334354-1 (Version None)
Quarter: 2004Q2

REPORT INFORMATION
  Report Type: 
  Country: None (occurrence: None)
  Receive Date: 20040405
  Receipt Date: 20040330
  Transmission Date: 20050107
  Serious: Yes (Disabling)
  Sender: FDA-Public Use
  Company Number: TCI2004A00672

PATIENT
  Age: 76 Year
  Sex: Male

DRUGS (1)
  1. LEUPLIN FOR INJECTION KIT3.75 (LEUPROLIDE ACETATE) (INJECTION) [Suspect]
     Indication: PROSTATE CANCER
     Dosage: 3.75 MG (3.75 MG, 1 IN 28 D) SUBCUTANEOUS
     Route: 058
     Dates: start: 20030128

REACTIONS (9)
  - EYELID PTOSIS [None]
  - HEADACHE [None]
  - IIIRD NERVE PARALYSIS [None]
  - NAUSEA [None]
  - NECROSIS [None]
  - NUCLEAR MAGNETIC RESONANCE IMAGING ABNORMAL [None]
  - PITUITARY HAEMORRHAGE [None]
  - THYROXINE FREE DECREASED [None]
  - TRI-IODOTHYRONINE DECREASED [None]
